FAERS Safety Report 4953764-2 (Version None)
Quarter: 2006Q1

REPORT INFORMATION
  Report Type: 
  Country: None (occurrence: None)
  Receive Date: 20060323
  Receipt Date: 20060323
  Transmission Date: 20060701
  Serious: Yes (Hospitalization)
  Sender: FDA-Public Use
  Company Number: None

PATIENT
  Age: 43 Year
  Sex: Male
  Weight: 60.782 kg

DRUGS (2)
  1. LAMICTAL [Suspect]
     Indication: COMPLEX PARTIAL SEIZURES
     Dosage: 3 X 100MG   BID   PO
     Route: 048
     Dates: start: 20051214, end: 20060125
  2. LAMICTAL [Suspect]
     Indication: CONVULSION
     Dosage: 3 X 100MG   BID   PO
     Route: 048
     Dates: start: 20051214, end: 20060125

REACTIONS (3)
  - DYSSTASIA [None]
  - GAIT DISTURBANCE [None]
  - LETHARGY [None]
